FAERS Safety Report 17158627 (Version 1)
Quarter: 2019Q4

REPORT INFORMATION
  Report Type: Spontaneous
  Country: US (occurrence: US)
  Receive Date: 20191122
  Receipt Date: 20191122
  Transmission Date: 20200122
  Serious: Yes (Hospitalization)
  Sender: FDA-Public Use
  Company Number: None

PATIENT
  Age: 64 Year
  Sex: Female

DRUGS (22)
  1. HYDROCHLOROTHIAZIDE. [Concomitant]
     Active Substance: HYDROCHLOROTHIAZIDE
  2. METOPROLOL. [Concomitant]
     Active Substance: METOPROLOL
  3. AMLODIPINE [Concomitant]
     Active Substance: AMLODIPINE BESYLATE
  4. CELECOXIB. [Concomitant]
     Active Substance: CELECOXIB
  5. MOVANTIK [Concomitant]
     Active Substance: NALOXEGOL OXALATE
  6. NIACIN. [Concomitant]
     Active Substance: NIACIN
  7. OXYCODONE [Concomitant]
     Active Substance: OXYCODONE
  8. TIZANDINE [Concomitant]
     Active Substance: TIZANIDINE
  9. ACTEMRA [Suspect]
     Active Substance: TOCILIZUMAB
     Indication: RHEUMATOID ARTHRITIS
     Route: 058
     Dates: start: 20171128
  10. DOK [Concomitant]
     Active Substance: DOCUSATE SODIUM
  11. SERTRALINE [Concomitant]
     Active Substance: SERTRALINE HYDROCHLORIDE
  12. FEROSUL [Concomitant]
     Active Substance: FERROUS SULFATE
  13. RESTASIS [Concomitant]
     Active Substance: CYCLOSPORINE
  14. OMEPRAZOLE. [Concomitant]
     Active Substance: OMEPRAZOLE
  15. RASUVO 22.5MG [Concomitant]
  16. ATORVASTATIN [Concomitant]
     Active Substance: ATORVASTATIN
  17. FENOFIBRATE. [Concomitant]
     Active Substance: FENOFIBRATE
  18. MORPHINE [Concomitant]
     Active Substance: MORPHINE
  19. ALPRAZOLAM. [Concomitant]
     Active Substance: ALPRAZOLAM
  20. FOLIC ACID. [Concomitant]
     Active Substance: FOLIC ACID
  21. MYRBETRIQ [Concomitant]
     Active Substance: MIRABEGRON
  22. VAGIFEM [Concomitant]
     Active Substance: ESTRADIOL

REACTIONS (1)
  - Knee operation [None]
